FAERS Safety Report 25010396 (Version 2)
Quarter: 2025Q1

REPORT INFORMATION
  Report Type: Report from Study
  Country: US (occurrence: US)
  Receive Date: 20250225
  Receipt Date: 20250305
  Transmission Date: 20250409
  Serious: Yes (Other)
  Sender: UCB
  Company Number: US-UCBSA-2025010069

PATIENT
  Age: 39 Year
  Sex: Female

DRUGS (1)
  1. CERTOLIZUMAB PEGOL [Suspect]
     Active Substance: CERTOLIZUMAB PEGOL
     Indication: Ankylosing spondylitis
     Dates: end: 20240601

REACTIONS (2)
  - Breast cancer [Recovered/Resolved]
  - Breast operation [Recovered/Resolved]

NARRATIVE: CASE EVENT DATE: 20240401
